FAERS Safety Report 8616827-6 (Version None)
Quarter: 2012Q3

REPORT INFORMATION
  Report Type: 
  Country: None (occurrence: None)
  Receive Date: 20120823
  Receipt Date: 20120808
  Transmission Date: 20120928
  Serious: Yes (Hospitalization, Other)
  Sender: FDA-Public Use
  Company Number: US-009507513-2010SP031305

PATIENT

DRUGS (1)
  1. NUVARING [Suspect]
     Indication: CONTRACEPTION
     Dates: start: 20060101, end: 20060601

REACTIONS (5)
  - LUNG INFILTRATION [None]
  - VAGINITIS BACTERIAL [None]
  - DEEP VEIN THROMBOSIS [None]
  - BLOOD DISORDER [None]
  - PULMONARY EMBOLISM [None]
